FAERS Safety Report 11351373 (Version 1)
Quarter: 2015Q3

REPORT INFORMATION
  Report Type: Spontaneous
  Country: US (occurrence: None)
  Receive Date: 20150806
  Receipt Date: 20150806
  Transmission Date: 20151125
  Serious: Yes (Other)
  Sender: FDA-Public Use
  Company Number: None

PATIENT
  Age: 45 Year
  Sex: Female
  Weight: 64.86 kg

DRUGS (1)
  1. ESTRADIOL 0.1 MG [Suspect]
     Active Substance: ESTRADIOL
     Indication: MENOPAUSE
     Dosage: 1 PATCH TWICE WEEKLY
     Dates: start: 20150528, end: 20150730

REACTIONS (3)
  - Product adhesion issue [None]
  - Crying [None]
  - Drug effect decreased [None]

NARRATIVE: CASE EVENT DATE: 20150528
